FAERS Safety Report 4642705-3 (Version None)
Quarter: 2005Q2

REPORT INFORMATION
  Report Type: 
  Country: None (occurrence: None)
  Receive Date: 20050420
  Receipt Date: 20050405
  Transmission Date: 20051028
  Serious: Yes (Life-Threatening, Hospitalization, Disabling)
  Sender: FDA-Public Use
  Company Number: S04-GER-08030-01

PATIENT
  Age: 48 Year
  Sex: Male

DRUGS (2)
  1. CIPRALEX (ESCITALOPRAM) [Suspect]
     Indication: DEPRESSION
     Dosage: 10 MG QD PO
     Route: 048
     Dates: start: 20040812, end: 20041108
  2. CARNIGEN (OXILOFRINE HYDROCHLORIDE) [Concomitant]

REACTIONS (12)
  - AFFECT LABILITY [None]
  - CATHETER SEPSIS [None]
  - DIALYSIS [None]
  - ENTEROCOCCAL INFECTION [None]
  - ESCHERICHIA URINARY TRACT INFECTION [None]
  - GLOMERULONEPHRITIS PROLIFERATIVE [None]
  - HENOCH-SCHONLEIN PURPURA [None]
  - MENTAL DISORDER DUE TO A GENERAL MEDICAL CONDITION [None]
  - NORMOCHROMIC NORMOCYTIC ANAEMIA [None]
  - RENAL FAILURE ACUTE [None]
  - THROMBOCYTOPENIA [None]
  - VASCULITIS [None]
